FAERS Safety Report 5115088-2 (Version None)
Quarter: 2006Q3

REPORT INFORMATION
  Report Type: 
  Country: None (occurrence: None)
  Receive Date: 20060925
  Receipt Date: 20060925
  Transmission Date: 20061208
  Serious: Yes (Life-Threatening, Hospitalization, Other)
  Sender: FDA-Public Use
  Company Number: None

PATIENT
  Age: 39 Year
  Sex: Female
  Weight: 72.5755 kg

DRUGS (1)
  1. AMBIEN [Suspect]
     Indication: SLEEP DISORDER
     Dosage: 5 MG 1X PO
     Route: 048
     Dates: start: 20050805, end: 20060805

REACTIONS (8)
  - ABNORMAL SLEEP-RELATED EVENT [None]
  - BACK INJURY [None]
  - FALL [None]
  - HALLUCINATION [None]
  - LIMB INJURY [None]
  - NIGHTMARE [None]
  - POISONING [None]
  - SLEEP WALKING [None]
